FAERS Safety Report 7088486-8 (Version None)
Quarter: 2010Q4

REPORT INFORMATION
  Report Type: 
  Country: None (occurrence: None)
  Receive Date: 20101108
  Receipt Date: 20101026
  Transmission Date: 20110411
  Serious: Yes (Hospitalization)
  Sender: FDA-Public Use
  Company Number: IT-ROCHE-738423

PATIENT
  Sex: Female

DRUGS (2)
  1. PEGINTERFERON ALFA-2A [Suspect]
     Indication: HEPATITIS C
     Route: 058
     Dates: end: 20100420
  2. RIBAVIRIN [Concomitant]
     Indication: HEPATITIS C
     Dosage: ROUTE: OS
     Route: 048

REACTIONS (5)
  - AMNESIA [None]
  - ANXIETY [None]
  - BLOOD THYROID STIMULATING HORMONE DECREASED [None]
  - PANIC ATTACK [None]
  - PERICARDIAL EFFUSION [None]
